FAERS Safety Report 9316280 (Version 1)
Quarter: 2013Q2

REPORT INFORMATION
  Report Type: Spontaneous
  Country: US (occurrence: None)
  Receive Date: 20130522
  Receipt Date: 20130522
  Transmission Date: 20140414
  Serious: Yes (Hospitalization)
  Sender: FDA-Public Use
  Company Number: UTC-032608

PATIENT
  Age: 57 Year
  Sex: Female
  Weight: 52.27 kg

DRUGS (2)
  1. REMODULIN [Suspect]
     Indication: PULMONARY ARTERIAL HYPERTENSION
     Dosage: 0.0204 UG/KG, 1 IN 1 MIN
     Route: 041
     Dates: start: 20111128
  2. COUMADIN (WARFARIN SODIUM) [Concomitant]

REACTIONS (6)
  - Fall [None]
  - Cervical vertebral fracture [None]
  - Overdose [None]
  - Device kink [None]
  - Loss of consciousness [None]
  - Device occlusion [None]
